FAERS Safety Report 9425760 (Version 1)
Quarter: 2013Q3

REPORT INFORMATION
  Report Type: Spontaneous
  Country: GB (occurrence: GB)
  Receive Date: 20130729
  Receipt Date: 20130729
  Transmission Date: 20140515
  Serious: Yes (Disabling, Other)
  Sender: FDA-Public Use
  Company Number: GB-WATSON-2013-12824

PATIENT
  Age: 62 Year
  Sex: Female

DRUGS (2)
  1. GENTAMICIN (UNKNOWN) [Suspect]
     Indication: INFECTION PROPHYLAXIS
     Dosage: 20 MG/0.5ML, SINGLE
     Route: 057
  2. MAXITROL [Concomitant]
     Indication: PRODUCT USED FOR UNKNOWN INDICATION
     Dosage: UNK
     Route: 031

REACTIONS (2)
  - Toxic anterior segment syndrome [Recovered/Resolved with Sequelae]
  - Incorrect route of drug administration [Recovered/Resolved with Sequelae]
